FAERS Safety Report 7917002-0 (Version None)
Quarter: 2011Q4

REPORT INFORMATION
  Report Type: 
  Country: None (occurrence: None)
  Receive Date: 20111116
  Receipt Date: 20111116
  Transmission Date: 20120403
  Serious: Yes (Hospitalization, Disabling, Other)
  Sender: FDA-Public Use
  Company Number: None

PATIENT
  Age: 47 Year
  Sex: Female
  Weight: 70.306 kg

DRUGS (1)
  1. LYRICA [Suspect]
     Indication: FIBROMYALGIA
     Dosage: 150 MG
     Route: 048
     Dates: start: 20100320, end: 20100402

REACTIONS (4)
  - PAIN [None]
  - DECREASED ACTIVITY [None]
  - SUICIDE ATTEMPT [None]
  - IMPAIRED WORK ABILITY [None]
